FAERS Safety Report 6084136-8 (Version None)
Quarter: 2009Q1

REPORT INFORMATION
  Report Type: 
  Country: None (occurrence: None)
  Receive Date: 20090219
  Receipt Date: 20090210
  Transmission Date: 20090719
  Serious: Yes (Death)
  Sender: FDA-Public Use
  Company Number: BE-AVENTIS-200911354GDDC

PATIENT
  Sex: Male
  Weight: 100 kg

DRUGS (8)
  1. TAXOTERE [Suspect]
     Indication: NON-SMALL CELL LUNG CANCER
     Route: 042
     Dates: start: 20070601, end: 20070601
  2. CISPLATIN [Suspect]
     Indication: NON-SMALL CELL LUNG CANCER
     Route: 042
     Dates: start: 20070601, end: 20070601
  3. LIPITOR [Concomitant]
     Dosage: DOSE: UNK
  4. ACEDICON [Concomitant]
     Dosage: DOSE: UNK
  5. CORDARONE [Concomitant]
     Dosage: DOSE: UNK
  6. SINTROM [Concomitant]
     Indication: ATRIAL FIBRILLATION
     Dosage: DOSE: UNK
  7. GLUCOPHAGE [Concomitant]
  8. MEDROL [Concomitant]

REACTIONS (4)
  - GASTRIC ULCER HAEMORRHAGE [None]
  - MULTI-ORGAN FAILURE [None]
  - PNEUMONIA [None]
  - RENAL FAILURE ACUTE [None]
